FAERS Safety Report 4834630-X (Version None)
Quarter: 2005Q4

REPORT INFORMATION
  Report Type: 
  Country: None (occurrence: None)
  Receive Date: 20051122
  Receipt Date: 20050524
  Transmission Date: 20060501
  Serious: No
  Sender: FDA-Public Use
  Company Number: US-BRISTOL-MYERS SQUIBB COMPANY-12985057

PATIENT
  Age: 66 Year
  Sex: Male
  Weight: 88 kg

DRUGS (17)
  1. GLUCOPHAGE [Suspect]
     Dates: end: 20050506
  2. PRAVACHOL [Suspect]
     Dates: end: 20050506
  3. LUPRON DEPOT-3 [Suspect]
     Indication: PROSTATE CANCER
     Route: 030
     Dates: start: 20050103
  4. ACTONEL [Suspect]
     Dates: end: 20050506
  5. PRANDIN [Suspect]
     Dates: end: 20050506
  6. LOPID [Suspect]
     Dates: end: 20050506
  7. LANTUS [Suspect]
     Dates: end: 20050506
  8. HYZAAR [Suspect]
     Dates: end: 20050506
  9. INDERAL LA [Suspect]
  10. NIACIN [Suspect]
     Dates: end: 20050506
  11. ALTACE [Concomitant]
  12. CARDURA [Concomitant]
  13. ASPIRIN [Concomitant]
  14. PAXIL [Concomitant]
  15. SELENIUM SULFIDE [Concomitant]
  16. XANAX [Concomitant]
  17. DEMADEX [Concomitant]

REACTIONS (1)
  - OEDEMA PERIPHERAL [None]
